FAERS Safety Report 4378635-4 (Version None)
Quarter: 2004Q2

REPORT INFORMATION
  Report Type: 
  Country: None (occurrence: None)
  Receive Date: 20040610
  Receipt Date: 20040531
  Transmission Date: 20050107
  Serious: No
  Sender: FDA-Public Use
  Company Number: 2004AP03001

PATIENT
  Age: 35 Year
  Sex: Female

DRUGS (2)
  1. ZOLADEX [Suspect]
     Indication: UTERINE LEIOMYOMA
     Dosage: 1.8 MG Q4WK SQ
     Route: 058
     Dates: start: 20030528, end: 20031015
  2. FERROMIA [Concomitant]

REACTIONS (3)
  - HEADACHE [None]
  - HOT FLUSH [None]
  - HYPERCHOLESTEROLAEMIA [None]
